FAERS Safety Report 10255178 (Version 3)
Quarter: 2014Q3

REPORT INFORMATION
  Report Type: Spontaneous
  Country: DE (occurrence: DE)
  Receive Date: 20140624
  Receipt Date: 20140806
  Transmission Date: 20150326
  Serious: Yes (Hospitalization, Other)
  Sender: FDA-Public Use
  Company Number: DE-JNJFOC-20140613561

PATIENT
  Age: 41 Year
  Sex: Female
  Weight: 88.5 kg

DRUGS (2)
  1. REMICADE [Suspect]
     Active Substance: INFLIXIMAB
     Indication: CROHN^S DISEASE
     Route: 042
     Dates: start: 20140402
  2. REMICADE [Suspect]
     Active Substance: INFLIXIMAB
     Indication: CROHN^S DISEASE
     Route: 042
     Dates: start: 20120913, end: 20140303

REACTIONS (8)
  - Antinuclear antibody positive [Unknown]
  - Crohn^s disease [Unknown]
  - Myocarditis [Unknown]
  - Leiomyoma [Unknown]
  - Double stranded DNA antibody positive [Unknown]
  - Ovarian cyst [Unknown]
  - Psoriasis [Unknown]
  - Dermatitis atopic [Unknown]

NARRATIVE: CASE EVENT DATE: 2012
